FAERS Safety Report 9299385 (Version 2)
Quarter: 2013Q2

REPORT INFORMATION
  Report Type: Spontaneous
  Country: US (occurrence: US)
  Receive Date: 20130520
  Receipt Date: 20130628
  Transmission Date: 20140414
  Serious: Yes (Hospitalization)
  Sender: FDA-Public Use
  Company Number: US-B.I. PHARMACEUTICALS,INC./RIDGEFIELD-2013-BI-13925BP

PATIENT
  Age: 61 Year
  Sex: Female
  Weight: 143.34 kg

DRUGS (16)
  1. PRADAXA [Suspect]
     Indication: ANTICOAGULANT THERAPY
     Dosage: 300 MG
     Dates: start: 20111227, end: 20120426
  2. PRADAXA [Suspect]
     Indication: ATRIAL FIBRILLATION
  3. QUINAPRIL [Concomitant]
     Dosage: 40 MG
  4. CARTIA XT [Concomitant]
     Dosage: 240 MG
  5. GLIPIZIDE [Concomitant]
     Dosage: 20 MG
  6. ACTOS [Concomitant]
     Dosage: 40 MG
  7. JANUVIA [Concomitant]
     Dosage: 100 MG
  8. SPIRONOLACTONE [Concomitant]
     Dosage: 50 MG
  9. LASIX [Concomitant]
     Dosage: 60 MG
  10. CLONAZEPAM [Concomitant]
  11. AMITRIPTYLINE [Concomitant]
     Dosage: 150 MG
  12. CYMBALTA [Concomitant]
     Dosage: 60 MG
  13. SIMVASTATIN [Concomitant]
     Dosage: 40 MG
  14. VESICARE [Concomitant]
     Dosage: 5 MG
  15. METFORMIN [Concomitant]
     Dosage: 2000 MG
  16. OMEPRAZOLE [Concomitant]
     Dosage: 40 MG

REACTIONS (2)
  - Gastrointestinal haemorrhage [Unknown]
  - Chest pain [Unknown]
